FAERS Safety Report 9657190 (Version 2)
Quarter: 2013Q4

REPORT INFORMATION
  Report Type: Spontaneous
  Country: GB (occurrence: GB)
  Receive Date: 20131030
  Receipt Date: 20131030
  Transmission Date: 20140711
  Serious: Yes (Death)
  Sender: FDA-Public Use
  Company Number: GB-DRREDDYS-GER/UKI/13/0028544

PATIENT
  Age: 71 Year
  Sex: Female

DRUGS (2)
  1. RISPERIDONE [Suspect]
     Indication: PSYCHIATRIC SYMPTOM
     Dates: start: 2005, end: 2011
  2. RISPERIDONE [Suspect]
     Indication: PSYCHOTIC DISORDER

REACTIONS (1)
  - Parkinsonism [Fatal]
